FAERS Safety Report 4470481-6 (Version None)
Quarter: 2004Q4

REPORT INFORMATION
  Report Type: 
  Country: None (occurrence: None)
  Receive Date: 20041001
  Receipt Date: 20040923
  Transmission Date: 20050328
  Serious: Yes (Death, Hospitalization, Other)
  Sender: FDA-Public Use
  Company Number: 2001-02-0098

PATIENT
  Age: 44 Year
  Sex: Male
  Weight: 106 kg

DRUGS (1)
  1. INTRON A [Suspect]
     Indication: NON-HODGKIN'S LYMPHOMA
     Dosage: 3 MU TIW SUBCUTANEOUS
     Route: 058
     Dates: start: 19960717, end: 20000803

REACTIONS (8)
  - AMNESIA [None]
  - DISEASE PROGRESSION [None]
  - GENERAL PHYSICAL HEALTH DETERIORATION [None]
  - HEADACHE [None]
  - MALIGNANT MELANOMA [None]
  - NAEVUS CELL NAEVUS [None]
  - OLIGODENDROGLIOMA [None]
  - TEMPORAL LOBE EPILEPSY [None]
